FAERS Safety Report 8443220-1 (Version None)
Quarter: 2012Q2

REPORT INFORMATION
  Report Type: 
  Country: None (occurrence: None)
  Receive Date: 20120617
  Receipt Date: 20120604
  Transmission Date: 20120825
  Serious: Yes (Life-Threatening)
  Sender: FDA-Public Use
  Company Number: IT-TEVA-342105ISR

PATIENT
  Age: 30 Year
  Sex: Male

DRUGS (6)
  1. FLUOROURACIL [Suspect]
     Indication: COLORECTAL CANCER METASTATIC
     Route: 065
     Dates: start: 20060901
  2. LEUCOVORIN CALCIUM [Concomitant]
     Indication: COLORECTAL CANCER METASTATIC
     Route: 065
     Dates: start: 20060901
  3. FLUOROURACIL [Suspect]
     Indication: COLORECTAL CANCER
     Dosage: 30 MONTHS LATER
  4. OXALIPLATIN [Concomitant]
     Indication: COLORECTAL CANCER
     Dosage: 30 MONTHS LATER
  5. OXALIPLATIN [Concomitant]
     Indication: COLORECTAL CANCER METASTATIC
     Route: 065
     Dates: start: 20060901
  6. LEUCOVORIN CALCIUM [Concomitant]
     Indication: COLORECTAL CANCER
     Dosage: 30 MONTHS LATER

REACTIONS (6)
  - MUCOSAL INFLAMMATION [None]
  - STOMATITIS [None]
  - NEUROTOXICITY [None]
  - VOMITING [None]
  - HEPATOTOXICITY [None]
  - DIARRHOEA [None]
